FAERS Safety Report 19030008 (Version 5)
Quarter: 2021Q3

REPORT INFORMATION
  Report Type: Report from Study
  Country: US (occurrence: US)
  Receive Date: 20210319
  Receipt Date: 20210805
  Transmission Date: 20211014
  Serious: Yes (Hospitalization, Other)
  Sender: FDA-Public Use
  Company Number: US-BIOVITRUM-2021US2635

PATIENT
  Age: 59 Year
  Sex: Female

DRUGS (1)
  1. KINERET [Suspect]
     Active Substance: ANAKINRA
     Indication: PERICARDITIS
     Route: 058
     Dates: start: 20190408

REACTIONS (6)
  - C-reactive protein abnormal [Unknown]
  - Vitreous floaters [Unknown]
  - COVID-19 pneumonia [Unknown]
  - C-reactive protein increased [Unknown]
  - Off label use [Not Recovered/Not Resolved]
  - Skin lesion [Unknown]

NARRATIVE: CASE EVENT DATE: 20190408
